FAERS Safety Report 8835185 (Version 1)
Quarter: 2012Q4

REPORT INFORMATION
  Report Type: 
  Country: FR (occurrence: FR)
  Receive Date: 20121011
  Receipt Date: 20121011
  Transmission Date: 20130627
  Serious: Yes (Hospitalization, Other)
  Sender: FDA-Public Use
  Company Number: FR-PFIZER INC-2012246934

PATIENT
  Age: 93 Year
  Sex: Female

DRUGS (7)
  1. ACEBUTOLOL [Concomitant]
     Dosage: 0.5 DF, 1x/day (in the morning)
  2. ASPEGIC [Concomitant]
  3. XANAX [Concomitant]
  4. LANTUS [Concomitant]
  5. ZOLOFT [Suspect]
     Dosage: UNK
     Route: 048
     Dates: start: 20120819, end: 20120830
  6. SMECTA [Concomitant]
  7. ALTIZIDE/ SPIRONOLACTONE [Concomitant]
     Dosage: 25/15
     Dates: end: 20120830

REACTIONS (9)
  - Hyponatraemia [Recovered/Resolved]
  - Syncope [Recovered/Resolved]
  - Renal failure [Unknown]
  - Femoral neck fracture [Unknown]
  - Forearm fracture [Unknown]
  - Loss of consciousness [Recovered/Resolved]
  - Hypochloraemia [Unknown]
  - Normochromic normocytic anaemia [Unknown]
  - Hypoproteinaemia [Unknown]
